FAERS Safety Report 8129157-6 (Version None)
Quarter: 2012Q1

REPORT INFORMATION
  Report Type: 
  Country: None (occurrence: None)
  Receive Date: 20120210
  Receipt Date: 20111025
  Transmission Date: 20120608
  Serious: Yes (Other)
  Sender: FDA-Public Use
  Company Number: US-BRISTOL-MYERS SQUIBB COMPANY-16194193

PATIENT
  Age: 50 Year
  Sex: Female

DRUGS (9)
  1. KEPPRA [Concomitant]
  2. SYNTHROID [Concomitant]
  3. FLEXERIL [Concomitant]
  4. KLONOPIN [Concomitant]
  5. ORENCIA [Suspect]
     Dosage: 6 TREATMENTS
  6. ZINC SULFATE [Concomitant]
  7. VOLTAREN [Concomitant]
  8. VITAMIN B-12 [Concomitant]
  9. ASCORBIC ACID [Concomitant]

REACTIONS (5)
  - PNEUMONIA [None]
  - MUSCLE SPASMS [None]
  - UPPER RESPIRATORY TRACT INFECTION [None]
  - BONE PAIN [None]
  - SINUSITIS [None]
